FAERS Safety Report 12268747 (Version 2)
Quarter: 2016Q2

REPORT INFORMATION
  Report Type: Spontaneous
  Country: AU (occurrence: AU)
  Receive Date: 20160414
  Receipt Date: 20160418
  Transmission Date: 20160815
  Serious: Yes (Hospitalization, Other)
  Sender: FDA-Public Use
  Company Number: AU-ABBVIE-16K-008-1582940-00

PATIENT
  Sex: Female

DRUGS (1)
  1. HUMIRA [Suspect]
     Active Substance: ADALIMUMAB
     Indication: ANKYLOSING SPONDYLITIS
     Route: 058
     Dates: start: 200801, end: 201601

REACTIONS (8)
  - Cerebrovascular accident [Recovering/Resolving]
  - Vasculitis [Unknown]
  - Pleuropericarditis [Recovered/Resolved with Sequelae]
  - Atrial flutter [Unknown]
  - Cerebral infarction [Unknown]
  - Atrial fibrillation [Recovered/Resolved with Sequelae]
  - Dysphagia [Recovered/Resolved]
  - Herpes zoster cutaneous disseminated [Recovered/Resolved with Sequelae]

NARRATIVE: CASE EVENT DATE: 2016
